FAERS Safety Report 6414273-7 (Version None)
Quarter: 2009Q4

REPORT INFORMATION
  Report Type: 
  Country: None (occurrence: None)
  Receive Date: 20091026
  Receipt Date: 20091016
  Transmission Date: 20100525
  Serious: Yes (Hospitalization)
  Sender: FDA-Public Use
  Company Number: JP-PFIZER INC-2009276414

PATIENT
  Age: 16 Year

DRUGS (3)
  1. LOMEFLOXACIN HCL [Suspect]
     Indication: PERIODONTITIS
     Dosage: 200 MG, 3X/DAY
     Route: 048
     Dates: start: 20080725, end: 20080802
  2. DICLOFENAC DIETHYLAMINE [Concomitant]
     Indication: PERIODONTITIS
     Dosage: 25 MG, 1X/DAY
     Route: 048
     Dates: start: 20080725, end: 20080802
  3. DICLOFENAC DIETHYLAMINE [Concomitant]
     Indication: ANALGESIC THERAPY

REACTIONS (7)
  - ERYTHEMA [None]
  - LYMPHADENOPATHY [None]
  - PAROTID GLAND ENLARGEMENT [None]
  - PHOTOSENSITIVITY REACTION [None]
  - PRURITUS [None]
  - PYREXIA [None]
  - TANNING [None]
